FAERS Safety Report 9339176 (Version 1)
Quarter: 2013Q2

REPORT INFORMATION
  Report Type: Spontaneous
  Country: US (occurrence: None)
  Receive Date: 20130606
  Receipt Date: 20130606
  Transmission Date: 20140414
  Serious: Yes (Other)
  Sender: FDA-Public Use
  Company Number: None

PATIENT
  Age: 53 Year
  Sex: Female
  Weight: 61.24 kg

DRUGS (2)
  1. LEVAQUIN [Suspect]
     Route: 048
     Dates: start: 20080901, end: 20080905
  2. LEVAQUIN [Suspect]
     Route: 048
     Dates: start: 20080901, end: 20080905

REACTIONS (8)
  - Pain in extremity [None]
  - Burning sensation [None]
  - Hypoaesthesia [None]
  - Fatigue [None]
  - Confusional state [None]
  - Thinking abnormal [None]
  - Paraesthesia [None]
  - Cognitive disorder [None]
